FAERS Safety Report 25539184 (Version 1)
Quarter: 2025Q3

REPORT INFORMATION
  Report Type: Spontaneous
  Country: EU (occurrence: EU)
  Receive Date: 20250710
  Receipt Date: 20250710
  Transmission Date: 20251020
  Serious: Yes (Congenital Anomaly, Other)
  Sender: AUROBINDO
  Company Number: EU-EMB-M202403138-1

PATIENT
  Sex: Male
  Weight: 2.62 kg

DRUGS (7)
  1. SERTRALINE HYDROCHLORIDE [Suspect]
     Active Substance: SERTRALINE HYDROCHLORIDE
     Indication: Depression
     Dosage: 50 MILLIGRAM, ONCE A DAY
     Route: 064
     Dates: start: 202309, end: 202406
  2. Pinimenthol [Concomitant]
     Indication: Bronchitis
     Route: 064
     Dates: start: 202403, end: 202405
  3. Pinimenthol [Concomitant]
     Indication: Pharyngitis
  4. Sidroga husten und bronchialtee [Concomitant]
     Indication: Bronchitis
     Route: 064
     Dates: start: 202403, end: 202403
  5. XYLOMETAZOLINE [Concomitant]
     Active Substance: XYLOMETAZOLINE
     Indication: Rhinitis
     Route: 064
     Dates: start: 202403, end: 202406
  6. METHYLDOPA [Concomitant]
     Active Substance: METHYLDOPA
     Indication: Hypertension
     Route: 064
     Dates: start: 202311, end: 202406
  7. LEVOTHYROXINE SODIUM\POTASSIUM IODIDE [Concomitant]
     Active Substance: LEVOTHYROXINE SODIUM\POTASSIUM IODIDE
     Indication: Hypothyroidism
     Dosage: 50 MICROGRAM, ONCE A DAY
     Route: 064
     Dates: start: 202309, end: 202406

REACTIONS (2)
  - Ventricular septal defect [Unknown]
  - Foetal exposure during pregnancy [Unknown]
